FAERS Safety Report 6241000-9 (Version None)
Quarter: 2009Q2

REPORT INFORMATION
  Report Type: 
  Country: None (occurrence: None)
  Receive Date: 20090623
  Receipt Date: 20090615
  Transmission Date: 20091009
  Serious: Yes (Other)
  Sender: FDA-Public Use
  Company Number: B0570876A

PATIENT
  Sex: Female

DRUGS (13)
  1. RELENZA [Suspect]
     Indication: INFLUENZA
     Dosage: 10MG TWICE PER DAY
     Route: 055
     Dates: start: 20090313
  2. ARICEPT [Suspect]
     Indication: DRUG USE FOR UNKNOWN INDICATION
     Dosage: 5MG PER DAY
     Route: 048
  3. VOGLIBOSE [Concomitant]
     Dosage: .6MG PER DAY
     Route: 048
  4. DEPAS [Concomitant]
     Dosage: .5MG PER DAY
     Route: 048
  5. LOCHOL [Concomitant]
     Dosage: 20MG PER DAY
     Route: 048
  6. DAONIL [Concomitant]
     Dosage: 7.5MG PER DAY
     Route: 048
  7. ADALAT [Concomitant]
     Dosage: 30MG PER DAY
     Route: 048
  8. CODEINE PHOSPHATE [Concomitant]
     Dosage: 3.99G PER DAY
     Route: 048
     Dates: start: 20090313, end: 20090318
  9. MAGNESIUM OXIDE [Concomitant]
     Dosage: .99G PER DAY
     Route: 048
     Dates: start: 20090313, end: 20090318
  10. KLARICID [Concomitant]
     Dosage: 400MG PER DAY
     Route: 048
     Dates: start: 20090313, end: 20090318
  11. CALONAL [Concomitant]
     Dosage: 400MG PER DAY
     Route: 048
     Dates: start: 20090313, end: 20090318
  12. KERLONG [Concomitant]
     Dosage: 5MG PER DAY
     Route: 048
  13. NU-LOTAN [Concomitant]
     Dosage: 25MG PER DAY
     Route: 048

REACTIONS (4)
  - ABNORMAL BEHAVIOUR [None]
  - DEMENTIA [None]
  - HYPERKINESIA [None]
  - HYPERVIGILANCE [None]
